FAERS Safety Report 20669932 (Version 2)
Quarter: 2022Q2

REPORT INFORMATION
  Report Type: Spontaneous
  Country: DE (occurrence: DE)
  Receive Date: 20220404
  Receipt Date: 20220421
  Transmission Date: 20220720
  Serious: Yes (Death, Life-Threatening)
  Sender: FDA-Public Use
  Company Number: None

PATIENT
  Age: 85 Year
  Sex: Male
  Weight: 65.6 kg

DRUGS (4)
  1. PAXLOVID [Suspect]
     Active Substance: NIRMATRELVIR\RITONAVIR
     Indication: COVID-19 treatment
     Dosage: [PF-07321332 300 MG]/[RITONAVIR 100 MG]; 2X/DAY
     Route: 048
     Dates: start: 20220316, end: 20220320
  2. MIRTAZAPINE [Concomitant]
     Active Substance: MIRTAZAPINE
     Indication: Circadian rhythm sleep disorder
     Dosage: PERMANENT MEDICATION 1X1
     Route: 048
  3. MIRTAZAPINE [Concomitant]
     Active Substance: MIRTAZAPINE
     Indication: Dementia
  4. NOVAMIN [Concomitant]
     Dosage: 3X20 DROPS
     Dates: start: 20220316, end: 20220317

REACTIONS (1)
  - Death [Fatal]

NARRATIVE: CASE EVENT DATE: 20220320
